FAERS Safety Report 22054883 (Version 5)
Quarter: 2023Q2

REPORT INFORMATION
  Report Type: Spontaneous
  Country: JP (occurrence: JP)
  Receive Date: 20230302
  Receipt Date: 20230606
  Transmission Date: 20230722
  Serious: Yes (Death, Other)
  Sender: FDA-Public Use
  Company Number: JP-CHUGAI-2023006386

PATIENT
  Age: 62 Year
  Sex: Male
  Weight: 53 kg

DRUGS (1)
  1. HEMLIBRA [Suspect]
     Active Substance: EMICIZUMAB-KXWH
     Indication: Haemophilia A without inhibitors
     Dosage: 90 MILLIGRAM, ONCE/2WEEKS
     Route: 058
     Dates: start: 20220818, end: 20230209

REACTIONS (7)
  - Cardiac failure acute [Fatal]
  - Normal pressure hydrocephalus [Unknown]
  - POEMS syndrome [Unknown]
  - Blood calcium increased [Recovering/Resolving]
  - Waldenstrom^s macroglobulinaemia [Unknown]
  - Polyneuropathy [Unknown]
  - Bladder hypertrophy [Unknown]

NARRATIVE: CASE EVENT DATE: 20221201
